FAERS Safety Report 15740277 (Version 1)
Quarter: 2018Q4

REPORT INFORMATION
  Report Type: Spontaneous
  Country: US (occurrence: US)
  Receive Date: 20181219
  Receipt Date: 20181219
  Transmission Date: 20190205
  Serious: No
  Sender: FDA-Public Use
  Company Number: US-BAYER-2018-236282

PATIENT
  Age: 55 Year
  Sex: Female

DRUGS (11)
  1. CELEBREX [Concomitant]
     Active Substance: CELECOXIB
  2. IRON [Concomitant]
     Active Substance: IRON
  3. OMEPRAZOLE. [Concomitant]
     Active Substance: OMEPRAZOLE
  4. VICODIN [Concomitant]
     Active Substance: ACETAMINOPHEN\HYDROCODONE BITARTRATE
  5. LEVOTHYROXIN [Concomitant]
     Active Substance: LEVOTHYROXINE
  6. MORPHINE [Concomitant]
     Active Substance: MORPHINE
  7. BACLOFEN. [Concomitant]
     Active Substance: BACLOFEN
  8. VITAMIN B 1-6-12 [Concomitant]
     Active Substance: CYANOCOBALAMIN\PYRIDOXINE\THIAMINE
  9. CALCITRIOL. [Concomitant]
     Active Substance: CALCITRIOL
  10. BETASERON [Suspect]
     Active Substance: INTERFERON BETA-1B
     Indication: MULTIPLE SCLEROSIS
     Dosage: 0.25 MG, QOD
     Route: 058
     Dates: start: 20150319
  11. GABAPENTIN. [Concomitant]
     Active Substance: GABAPENTIN

REACTIONS (1)
  - Product dose omission [None]

NARRATIVE: CASE EVENT DATE: 20181210
